FAERS Safety Report 4589116-7 (Version None)
Quarter: 2005Q1

REPORT INFORMATION
  Report Type: 
  Country: None (occurrence: None)
  Receive Date: 20050125
  Receipt Date: 20040908
  Transmission Date: 20050727
  Serious: No
  Sender: FDA-Public Use
  Company Number: USA040360637

PATIENT
  Age: 81 Year
  Sex: Female
  Weight: 56 kg

DRUGS (4)
  1. FORTEO [Suspect]
     Indication: OSTEOPOROSIS
     Dosage: 20 UG/1 DAY
     Dates: start: 20031101
  2. TENORMIN [Concomitant]
  3. VASOTEC [Concomitant]
  4. CLONIDINE [Concomitant]

REACTIONS (5)
  - INJECTION SITE HAEMORRHAGE [None]
  - MUSCLE SPASMS [None]
  - OVERDOSE [None]
  - PAIN IN EXTREMITY [None]
  - SINUS DISORDER [None]
